FAERS Safety Report 10229594 (Version 1)
Quarter: 2014Q2

REPORT INFORMATION
  Report Type: Spontaneous
  Country: GB (occurrence: None)
  Receive Date: 20140609
  Receipt Date: 20140609
  Transmission Date: 20141212
  Serious: No
  Sender: FDA-Public Use
  Company Number: GB2014K2131SPO

PATIENT
  Age: 6 Year
  Sex: Male

DRUGS (9)
  1. LANSOPRAZOLE [Suspect]
     Indication: REFLUX GASTRITIS
     Route: 048
     Dates: start: 20121101
  2. BACLOFEN (BACLOFEN) [Concomitant]
  3. BUPRENORPHINE (BUPRENORPHINE) [Concomitant]
  4. CHLORAL HYDRATE (CHLORAL HYDRATE) [Concomitant]
  5. LACOSAMIDE (LACOSAMIDE) [Concomitant]
  6. ORAMORPH (MORHINE SULFATE) [Concomitant]
  7. PARACETAMOL (PARACETAMOL) [Concomitant]
  8. SODIUM VALPROATE (VALPROIC ACID) [Concomitant]
  9. TOPIRAMATE (TOPIRAMATE) [Concomitant]

REACTIONS (2)
  - Photosensitivity reaction [None]
  - Sunburn [None]
